FAERS Safety Report 5581040-6 (Version None)
Quarter: 2008Q1

REPORT INFORMATION
  Report Type: 
  Country: None (occurrence: None)
  Receive Date: 20080103
  Receipt Date: 20071226
  Transmission Date: 20080703
  Serious: Yes (Other)
  Sender: FDA-Public Use
  Company Number: US-ALLERGAN-0714239US

PATIENT
  Sex: Female

DRUGS (2)
  1. RESTASIS [Suspect]
     Indication: DRY EYE
     Route: 047
     Dates: start: 20070901
  2. CYCLOSPORINE [Suspect]
     Indication: DRUG USE FOR UNKNOWN INDICATION
     Route: 048

REACTIONS (7)
  - DRY MOUTH [None]
  - DRY THROAT [None]
  - MOUTH ULCERATION [None]
  - OCULAR HYPERAEMIA [None]
  - PHARYNGEAL ULCERATION [None]
  - TONGUE DRY [None]
  - TONGUE ULCERATION [None]
